FAERS Safety Report 7533080-5 (Version None)
Quarter: 2011Q2

REPORT INFORMATION
  Report Type: 
  Country: None (occurrence: None)
  Receive Date: 20110608
  Receipt Date: 20110526
  Transmission Date: 20111010
  Serious: Yes (Hospitalization, Other)
  Sender: FDA-Public Use
  Company Number: US-ELI_LILLY_AND_COMPANY-US201006002506

PATIENT
  Sex: Female
  Weight: 60.317 kg

DRUGS (39)
  1. FLOVENT [Concomitant]
     Indication: ASTHMA
     Dosage: 110 UG, 2/D
     Route: 055
  2. LEVOTHYROXINE SODIUM [Concomitant]
     Indication: THYROID DISORDER
     Dosage: 88 UG, EACH MORNING
  3. PREVENTAN [Concomitant]
     Dosage: UNK, BID
  4. ACID REDUCER [Concomitant]
     Dosage: UNK, EACH EVENING
  5. FORTEO [Suspect]
     Dosage: 20 UG, QD
     Route: 065
  6. CALCIUM WITH VITAMIN D [Concomitant]
  7. LOVAZA [Concomitant]
     Dosage: 1000 MG, DAILY (1/D)
  8. ZYRTEC [Concomitant]
     Indication: HYPERSENSITIVITY
     Dosage: 10 MG, EACH EVENING
     Route: 065
  9. FORTEO [Suspect]
     Indication: OSTEOPOROSIS
     Dosage: 20 UG, DAILY (1/D)
     Route: 065
     Dates: start: 20090916
  10. FORTEO [Suspect]
     Dosage: 20 UG, DAILY (1/D)
     Route: 065
     Dates: start: 20090916
  11. FORTEO [Suspect]
     Dosage: 20 UG, QD
     Route: 065
  12. CLONIDINE [Concomitant]
     Indication: HYPERTENSION
     Dosage: 0.2 MG, UNKNOWN
     Route: 065
  13. MAGNESIUM SULFATE [Concomitant]
     Dosage: 0.5 D/F, UNK
  14. PROVENTIL                               /USA/ [Concomitant]
  15. OMEPRAZOLE [Concomitant]
     Indication: REFLUX GASTRITIS
     Dosage: 20 MG, 2/D
     Route: 065
  16. MULTIVITAMIN AND MINERAL [Concomitant]
  17. LORTAB [Concomitant]
     Dosage: 5 MG/500MG
     Route: 065
  18. CALCIUM CARBONATE [Concomitant]
     Dosage: UNK, 2/D
  19. DIOVAN [Concomitant]
     Indication: HYPERTENSION
     Dosage: 240 MG, 160 MG IN MORNING AND 80 MG AT NIGHT
     Route: 065
  20. TYLENOL (CAPLET) [Concomitant]
     Dosage: 2 D/F, DAILY (1/D)
  21. VITAMIN E [Concomitant]
     Dosage: 400 UNITS, UNKNOWN
     Route: 065
  22. VITAMIN B COMPLEX CAP [Concomitant]
     Dosage: UNK, DAILY (1/D)
     Route: 065
  23. METAMUCIL-2 [Concomitant]
     Indication: ABDOMINAL DISCOMFORT
  24. XALATAN [Concomitant]
     Indication: GLAUCOMA
     Dosage: 0.005 %, ONE DROP IN ACH EYE
     Route: 065
  25. THYROID TAB [Concomitant]
     Dosage: 75 UG, UNK
  26. FORTEO [Suspect]
     Dosage: 20 UG, DAILY (1/D)
     Route: 065
  27. NASONEX [Concomitant]
     Indication: HYPERSENSITIVITY
     Dosage: 50 UG, UNKNOWN
     Route: 065
  28. THYROID TAB [Concomitant]
     Dosage: 88 UG, UNK
  29. FORTEO [Suspect]
     Dosage: 20 UG, QD
     Route: 065
  30. COQ10 [Concomitant]
     Dosage: 30 MG, DAILY (1/D)
  31. MELATONIN [Concomitant]
     Indication: FEELING OF RELAXATION
     Dosage: 3 MG, HALF A TABLET
     Route: 065
  32. VENTOLIN                                /SCH/ [Concomitant]
     Route: 065
  33. SYNTHROID [Concomitant]
     Dosage: 88 UG, UNK
  34. DIOVAN [Concomitant]
     Dosage: 240 MG, DAILY (1/D)
  35. ASCORBIC ACID [Concomitant]
     Dosage: 500
     Route: 065
  36. CALCIUM CITRATE W/VITAMIN D NOS [Concomitant]
     Dosage: 600 MG, UNKNOWN
     Route: 065
  37. VITAMIN D [Concomitant]
  38. VITAMIN B COMPLEX WITH C [Concomitant]
  39. VICODIN [Concomitant]
     Dosage: 250 MG, EACH EVENING

REACTIONS (25)
  - JOINT INJURY [None]
  - HYPERSENSITIVITY [None]
  - HEADACHE [None]
  - LIGAMENT RUPTURE [None]
  - HYPERTENSION [None]
  - EYE PAIN [None]
  - ASTHMA [None]
  - INJECTION SITE PAIN [None]
  - LIMB DISCOMFORT [None]
  - NAUSEA [None]
  - DIZZINESS [None]
  - SOFT TISSUE INJURY [None]
  - BALANCE DISORDER [None]
  - ECCHYMOSIS [None]
  - JOINT DISLOCATION [None]
  - PAIN [None]
  - OSTEOARTHRITIS [None]
  - FALL [None]
  - JOINT SWELLING [None]
  - BACK PAIN [None]
  - COUGH [None]
  - FOOT FRACTURE [None]
  - FATIGUE [None]
  - ABDOMINAL PAIN UPPER [None]
  - MALAISE [None]
